FAERS Safety Report 6798362-3 (Version None)
Quarter: 2010Q2

REPORT INFORMATION
  Report Type: 
  Country: None (occurrence: None)
  Receive Date: 20100622
  Receipt Date: 20100610
  Transmission Date: 20101027
  Serious: Yes (Other)
  Sender: FDA-Public Use
  Company Number: US-1181726

PATIENT
  Age: 73 Year
  Sex: Male
  Weight: 97.5234 kg

DRUGS (1)
  1. TEARS NATURALE FREE EYE DROPS [Suspect]
     Dosage: (OPHTHALMIC), (OPHTHALMIC)
     Route: 047
     Dates: start: 20100427, end: 20100427

REACTIONS (5)
  - EYE LASER SURGERY [None]
  - EYE PAIN [None]
  - PRODUCT PACKAGING QUANTITY ISSUE [None]
  - VISION BLURRED [None]
  - VISUAL ACUITY REDUCED [None]
